FAERS Safety Report 17591857 (Version 1)
Quarter: 2020Q1

REPORT INFORMATION
  Report Type: Spontaneous
  Country: KR (occurrence: KR)
  Receive Date: 20200327
  Receipt Date: 20200327
  Transmission Date: 20200409
  Serious: Yes (Other)
  Sender: FDA-Public Use
  Company Number: KR-STRIDES ARCOLAB LIMITED-2020SP004028

PATIENT
  Age: 62 Year
  Sex: Female

DRUGS (1)
  1. VANCOMYCIN [Suspect]
     Active Substance: VANCOMYCIN
     Indication: PRODUCT USED FOR UNKNOWN INDICATION
     Dosage: UNK, INJECTION (OPHTHALMIC)

REACTIONS (6)
  - Retinal vascular occlusion [Not Recovered/Not Resolved]
  - Retinal haemorrhage [Not Recovered/Not Resolved]
  - Retinal vasculitis [Recovered/Resolved]
  - Retinal perivascular sheathing [Recovered/Resolved]
  - Visual acuity reduced [Unknown]
  - Retinal ischaemia [Not Recovered/Not Resolved]
